FAERS Safety Report 6023400-5 (Version None)
Quarter: 2008Q4

REPORT INFORMATION
  Report Type: 
  Country: None (occurrence: None)
  Receive Date: 20081230
  Receipt Date: 20081223
  Transmission Date: 20090506
  Serious: Yes (Other)
  Sender: FDA-Public Use
  Company Number: GB-TEVA-182914ISR

PATIENT
  Age: 76 Year
  Sex: Male

DRUGS (4)
  1. SIMVASTATIN [Suspect]
  2. AVANDAMET [Suspect]
     Indication: TYPE 2 DIABETES MELLITUS
  3. BENDROFLUMETHIAZIDE [Suspect]
  4. NICORANDIL [Suspect]

REACTIONS (1)
  - DIABETES MELLITUS INADEQUATE CONTROL [None]
